FAERS Safety Report 10219594 (Version 2)
Quarter: 2014Q2

REPORT INFORMATION
  Report Type: Spontaneous
  Country: JP (occurrence: JP)
  Receive Date: 20140605
  Receipt Date: 20140625
  Transmission Date: 20141212
  Serious: Yes (Hospitalization)
  Sender: FDA-Public Use
  Company Number: JP-GLAXOSMITHKLINE-B0993301A

PATIENT
  Age: 85 Year
  Sex: Female

DRUGS (2)
  1. VALTREX [Suspect]
     Indication: HERPES SIMPLEX
     Dosage: 250MG PER DAY
     Route: 048
     Dates: start: 20140430, end: 20140430
  2. ARASENA-A [Concomitant]
     Route: 065

REACTIONS (13)
  - Hallucination [Recovered/Resolved]
  - Vomiting [Recovered/Resolved]
  - Blood pressure increased [Recovered/Resolved]
  - Restlessness [Recovered/Resolved]
  - Dyskinesia [Recovered/Resolved]
  - Photopsia [Recovered/Resolved]
  - Dysarthria [Recovered/Resolved]
  - Affect lability [Recovered/Resolved]
  - Soliloquy [Recovered/Resolved]
  - Screaming [Recovered/Resolved]
  - Logorrhoea [Recovered/Resolved]
  - Agitation [Recovered/Resolved]
  - Dysarthria [Recovered/Resolved]
